FAERS Safety Report 5832459-7 (Version None)
Quarter: 2008Q3

REPORT INFORMATION
  Report Type: 
  Country: None (occurrence: None)
  Receive Date: 20080730
  Receipt Date: 20080728
  Transmission Date: 20090109
  Serious: Yes (Other)
  Sender: FDA-Public Use
  Company Number: 19828

PATIENT
  Age: 58 Year
  Sex: Female
  Weight: 53 kg

DRUGS (9)
  1. METHOTREXATE [Suspect]
     Indication: RHEUMATOID ARTHRITIS
     Dosage: 25 MG/ML WEEKLY IM
     Route: 030
  2. BISOPROLOL FUMARATE [Concomitant]
  3. PHOLCODINE STRONG LINCTUS [Concomitant]
  4. ACEMETACIN [Concomitant]
  5. CO-PROXAMOL /00016701/ [Concomitant]
  6. FOLIC ACID [Concomitant]
  7. RAMIPRIL [Concomitant]
  8. LANSOPRAZOLE [Concomitant]
  9. ALENDRONIC ACID [Concomitant]

REACTIONS (7)
  - COUGH [None]
  - ERYTHEMA [None]
  - EYE PRURITUS [None]
  - EYE SWELLING [None]
  - PRURITUS [None]
  - SNEEZING [None]
  - VOMITING [None]
